FAERS Safety Report 17255323 (Version 9)
Quarter: 2020Q1

REPORT INFORMATION
  Report Type: Spontaneous
  Country: US (occurrence: US)
  Receive Date: 20200110
  Receipt Date: 20200331
  Transmission Date: 20200409
  Serious: Yes (Hospitalization)
  Sender: FDA-Public Use
  Company Number: US-UNITED THERAPEUTICS-UNT-2020-000057

PATIENT
  Age: 24 Year
  Sex: Female
  Weight: 90.7 kg

DRUGS (11)
  1. UPTRAVI [Suspect]
     Active Substance: SELEXIPAG
     Indication: PRODUCT USED FOR UNKNOWN INDICATION
     Dosage: UNK
     Route: 065
  2. REMODULIN [Suspect]
     Active Substance: TREPROSTINIL
     Dosage: 0.018 ?G/KG, CONTINUING
     Route: 041
  3. UPTRAVI [Suspect]
     Active Substance: SELEXIPAG
     Dosage: 800 ?G, UNK
     Route: 065
     Dates: start: 20200311
  4. UPTRAVI [Suspect]
     Active Substance: SELEXIPAG
     Dosage: 1200 ?G, BID
     Route: 065
  5. REMODULIN [Suspect]
     Active Substance: TREPROSTINIL
     Indication: PULMONARY ARTERIAL HYPERTENSION
     Dosage: 0.030 ?G/KG, CONTINUING
     Route: 041
     Dates: start: 20161021
  6. REMODULIN [Suspect]
     Active Substance: TREPROSTINIL
     Dosage: 0.006 ?G/KG, CONTINUING
     Route: 041
  7. UPTRAVI [Suspect]
     Active Substance: SELEXIPAG
     Dosage: 600 ?G, UNK
     Route: 065
  8. LETAIRIS [Concomitant]
     Active Substance: AMBRISENTAN
     Indication: PRODUCT USED FOR UNKNOWN INDICATION
     Dosage: UNK
     Route: 065
  9. REMODULIN [Suspect]
     Active Substance: TREPROSTINIL
     Dosage: 0.021 ?G/KG, CONTINUING
     Route: 041
  10. UPTRAVI [Suspect]
     Active Substance: SELEXIPAG
     Dosage: 1000 ?G, BID
     Route: 065
  11. COUMADIN [Concomitant]
     Active Substance: WARFARIN SODIUM
     Indication: PRODUCT USED FOR UNKNOWN INDICATION
     Dosage: UNK
     Route: 065

REACTIONS (17)
  - Fatigue [Unknown]
  - Myalgia [Unknown]
  - Increased appetite [Unknown]
  - Dysphagia [Unknown]
  - Anxiety [Recovering/Resolving]
  - Nausea [Unknown]
  - Constipation [Unknown]
  - Device malfunction [Unknown]
  - Neck pain [Unknown]
  - Pain in jaw [Unknown]
  - Dyspnoea exertional [Unknown]
  - Headache [Unknown]
  - Pain [Unknown]
  - Flushing [Unknown]
  - Device dislocation [Unknown]
  - Dyspnoea [Unknown]
  - Diarrhoea [Unknown]

NARRATIVE: CASE EVENT DATE: 2019
